FAERS Safety Report 8109368 (Version 5)
Quarter: 2013Q4

REPORT INFORMATION
  Report Type: Spontaneous
  Country: US (occurrence: US)
  Receive Date: 20110826
  Receipt Date: 20131126
  Transmission Date: 20140711
  Serious: Yes (Other)
  Sender: FDA-Public Use
  Company Number: US-BAYER-2011-075107

PATIENT
  Age: 30 Year
  Sex: Female
  Weight: 61.22 kg

DRUGS (4)
  1. YAZ [Suspect]
     Indication: CONTRACEPTION
     Dosage: UNK
     Dates: start: 200612, end: 200704
  2. YAZ [Suspect]
     Indication: PREMENSTRUAL SYNDROME
  3. NAPROXEN [Concomitant]
     Dosage: UNK
     Route: 048
     Dates: start: 2004, end: 2009
  4. CLARITIN D [Concomitant]
     Dosage: UNK
     Dates: start: 20070413

REACTIONS (6)
  - Gallbladder injury [None]
  - Pain [None]
  - Injury [None]
  - Cholecystitis chronic [None]
  - Gallbladder cholesterolosis [None]
  - Biliary dyskinesia [None]
